FAERS Safety Report 5499104-4 (Version None)
Quarter: 2007Q4

REPORT INFORMATION
  Report Type: 
  Country: None (occurrence: None)
  Receive Date: 20071026
  Receipt Date: 20070725
  Transmission Date: 20080405
  Serious: No
  Sender: FDA-Public Use
  Company Number: A0653682A

PATIENT
  Age: 75 Year
  Sex: Male

DRUGS (7)
  1. ADVAIR DISKUS 100/50 [Suspect]
     Indication: ASTHMA
     Dosage: 1PUFF PER DAY
     Route: 055
     Dates: start: 20060901
  2. SEREVENT [Suspect]
     Indication: ASTHMA
     Route: 055
  3. COMBIVENT [Concomitant]
  4. AVODART [Concomitant]
  5. SULPHA [Concomitant]
  6. GLUCOSAMINE [Concomitant]
  7. ALBUTEROL [Concomitant]

REACTIONS (2)
  - DRY MOUTH [None]
  - PHARMACEUTICAL PRODUCT COMPLAINT [None]
